FAERS Safety Report 20660635 (Version 1)
Quarter: 2022Q1

REPORT INFORMATION
  Report Type: Spontaneous
  Country: US (occurrence: US)
  Receive Date: 20220331
  Receipt Date: 20220331
  Transmission Date: 20220423
  Serious: Yes (Other)
  Sender: FDA-Public Use
  Company Number: US-TEVA-2022-US-2021441

PATIENT
  Age: 15 Year
  Sex: Female

DRUGS (4)
  1. BUDESONIDE [Suspect]
     Active Substance: BUDESONIDE
     Indication: Eosinophilic oesophagitis
     Route: 065
  2. PREDNISONE [Suspect]
     Active Substance: PREDNISONE
     Indication: Eosinophilic oesophagitis
     Route: 065
  3. CODEINE [Suspect]
     Active Substance: CODEINE
     Indication: Trismus
     Route: 065
  4. SERTRALINE [Concomitant]
     Active Substance: SERTRALINE HYDROCHLORIDE
     Indication: Product used for unknown indication
     Route: 065

REACTIONS (7)
  - Irritability [Unknown]
  - Fatigue [Unknown]
  - Hunger [Unknown]
  - Ill-defined disorder [Unknown]
  - Asthenia [Unknown]
  - Amnesia [Unknown]
  - Drug ineffective [Unknown]
